FAERS Safety Report 12502719 (Version 2)
Quarter: 2016Q2

REPORT INFORMATION
  Report Type: Spontaneous
  Country: JP (occurrence: JP)
  Receive Date: 20160628
  Receipt Date: 20160630
  Transmission Date: 20160815
  Serious: Yes (Other)
  Sender: FDA-Public Use
  Company Number: JP-009507513-1606JPN008318

PATIENT
  Age: 30 Year
  Sex: Female
  Weight: 58 kg

DRUGS (6)
  1. SUPRANE [Concomitant]
     Active Substance: DESFLURANE
     Dosage: DAILY DOSAGE UNKNOWN
     Route: 065
     Dates: start: 20160610, end: 20160610
  2. OXYGEN. [Concomitant]
     Active Substance: OXYGEN
     Dosage: DAILY DOSAGE UNKNOWN
     Route: 065
     Dates: start: 20160610, end: 20160610
  3. POPSCAINE [Concomitant]
     Active Substance: LEVOBUPIVACAINE HYDROCHLORIDE
     Dosage: DAILY DOSAGE UNKNOWN
     Route: 051
     Dates: start: 20160610, end: 20160610
  4. BRIDION [Suspect]
     Active Substance: SUGAMMADEX
     Indication: NEUROMUSCULAR BLOCKADE REVERSAL
     Dosage: 100 MG, QD
     Route: 042
     Dates: start: 20160610, end: 20160610
  5. ESLAX INTRAVENOUS 25MG/2.5ML [Concomitant]
     Active Substance: ROCURONIUM BROMIDE
     Dosage: DAILY DOSAGE UNKNOWN
     Route: 051
     Dates: start: 20160610, end: 20160610
  6. PHYSIO 140 [Concomitant]
     Dosage: DAILY DOSAGE UNKNOWN
     Route: 051
     Dates: start: 20160610, end: 20160610

REACTIONS (1)
  - Bronchospasm [Recovered/Resolved]

NARRATIVE: CASE EVENT DATE: 20160610
